FAERS Safety Report 15256163 (Version 2)
Quarter: 2018Q3

REPORT INFORMATION
  Report Type: Spontaneous
  Country: PH (occurrence: PH)
  Receive Date: 20180808
  Receipt Date: 20180814
  Transmission Date: 20181010
  Serious: Yes (Death, Hospitalization, Other)
  Sender: FDA-Public Use
  Company Number: PHHY2018PH067799

PATIENT
  Age: 62 Year
  Sex: Female

DRUGS (1)
  1. ENTRESTO [Suspect]
     Active Substance: SACUBITRIL\VALSARTAN
     Indication: PRODUCT USED FOR UNKNOWN INDICATION
     Dosage: 50 MG, BID
     Route: 065

REACTIONS (11)
  - Gangrene [Unknown]
  - Peripheral arterial occlusive disease [Unknown]
  - Localised infection [Fatal]
  - Pneumonia [Unknown]
  - Insulin-requiring type 2 diabetes mellitus [Unknown]
  - Infection [Unknown]
  - Myocardial ischaemia [Unknown]
  - Cardiac failure chronic [Unknown]
  - Cardiac failure [Fatal]
  - Soft tissue infection [Unknown]
  - Post procedural myocardial infarction [Unknown]
